FAERS Safety Report 15308016 (Version 4)
Quarter: 2022Q3

REPORT INFORMATION
  Report Type: Report from Study
  Country: US (occurrence: US)
  Receive Date: 20180822
  Receipt Date: 20220921
  Transmission Date: 20221027
  Serious: Yes (Hospitalization, Other)
  Sender: FDA-Public Use
  Company Number: US-SHIRE-US201831913

PATIENT
  Age: 40 Year
  Sex: Male

DRUGS (3)
  1. ICATIBANT [Suspect]
     Active Substance: ICATIBANT ACETATE
     Indication: Product used for unknown indication
     Dosage: 30 MILLIGRAM
     Route: 058
  2. ICATIBANT [Suspect]
     Active Substance: ICATIBANT ACETATE
     Indication: Product used for unknown indication
     Dosage: 30 MILLIGRAM
     Route: 058
  3. TAKHZYRO [Suspect]
     Active Substance: LANADELUMAB-FLYO
     Indication: Product used for unknown indication
     Dosage: 300 MILLIGRAM
     Route: 058

REACTIONS (6)
  - Type 2 diabetes mellitus [Unknown]
  - Pancreatitis [Unknown]
  - Hyperlipidaemia [Unknown]
  - Hypertension [Unknown]
  - Injection site pain [Unknown]
  - Hereditary angioedema [Unknown]

NARRATIVE: CASE EVENT DATE: 20180723
